FAERS Safety Report 4417041-0 (Version None)
Quarter: 2004Q2

REPORT INFORMATION
  Report Type: 
  Country: None (occurrence: None)
  Receive Date: 20040629
  Receipt Date: 20031217
  Transmission Date: 20050107
  Serious: No
  Sender: FDA-Public Use
  Company Number: US061309

PATIENT

DRUGS (1)
  1. ARANESP [Suspect]
     Indication: ANAEMIA OF MALIGNANT DISEASE

REACTIONS (1)
  - THROMBOCYTOPENIA [None]
